FAERS Safety Report 4389462-6 (Version None)
Quarter: 2004Q2

REPORT INFORMATION
  Report Type: 
  Country: None (occurrence: None)
  Receive Date: 20040628
  Receipt Date: 20040616
  Transmission Date: 20050107
  Serious: Yes (Death)
  Sender: FDA-Public Use
  Company Number: US-JNJFOC-20040604330

PATIENT
  Age: 23 Year
  Sex: Male

DRUGS (6)
  1. DURAGESIC [Suspect]
     Dosage: 75 UG/HR, ORAL
     Route: 048
     Dates: start: 20040117, end: 20040117
  2. HYDROCODONE (HYDROCODONE) TABLETS [Suspect]
     Indication: PAIN
     Dosage: 5/500
  3. MARIJUANA (UNKNOWN) CANNABIS [Concomitant]
  4. ATROPINE (ATROPINE) UNKNOWN [Concomitant]
  5. PAXIL [Concomitant]
  6. XANAX [Concomitant]

REACTIONS (3)
  - DRUG TOXICITY [None]
  - INTENTIONAL MISUSE [None]
  - MEDICATION ERROR [None]
